FAERS Safety Report 7878672-9 (Version None)
Quarter: 2011Q4

REPORT INFORMATION
  Report Type: 
  Country: None (occurrence: None)
  Receive Date: 20111101
  Receipt Date: 20111020
  Transmission Date: 20120403
  Serious: Yes (Hospitalization)
  Sender: FDA-Public Use
  Company Number: FR-BRISTOL-MYERS SQUIBB COMPANY-16188369

PATIENT
  Age: 54 Year
  Sex: Female

DRUGS (3)
  1. PRAGMAREL [Suspect]
     Indication: HYPERTENSION
     Dates: end: 19900523
  2. ISKEDYL [Suspect]
     Indication: HYPERTENSION
     Route: 048
     Dates: end: 19900412
  3. SOTALOL HCL [Suspect]
     Indication: HYPERTENSION
     Route: 048
     Dates: end: 19900411

REACTIONS (1)
  - PULMONARY HYPERTENSION [None]
